FAERS Safety Report 15273232 (Version 1)
Quarter: 2018Q3

REPORT INFORMATION
  Report Type: Report from Study
  Country: US (occurrence: US)
  Receive Date: 20180813
  Receipt Date: 20180813
  Transmission Date: 20181010
  Serious: Yes (Hospitalization)
  Sender: FDA-Public Use
  Company Number: US-ACTELION-A-US2018-174584

PATIENT
  Age: 33 Year
  Sex: Female

DRUGS (2)
  1. UPTRAVI [Suspect]
     Active Substance: SELEXIPAG
     Indication: PULMONARY ARTERIAL HYPERTENSION
     Dosage: 600 MCG, BID
     Route: 048
  2. UPTRAVI [Suspect]
     Active Substance: SELEXIPAG
     Dosage: 400 MCG, BID
     Route: 048
     Dates: start: 20180531

REACTIONS (11)
  - Fluid overload [Unknown]
  - Dyspnoea [Unknown]
  - Stress [Unknown]
  - Pyrexia [Unknown]
  - Headache [Unknown]
  - Pain [Unknown]
  - Oxygen saturation decreased [Unknown]
  - Hypopnoea [Unknown]
  - Surgery [Unknown]
  - Vomiting [Unknown]
  - Chills [Unknown]

NARRATIVE: CASE EVENT DATE: 20180606
